FAERS Safety Report 7543585-9 (Version None)
Quarter: 2011Q2

REPORT INFORMATION
  Report Type: 
  Country: None (occurrence: None)
  Receive Date: 20110613
  Receipt Date: 20020819
  Transmission Date: 20111010
  Serious: Yes (Hospitalization)
  Sender: FDA-Public Use
  Company Number: PHFR2002GB02445

PATIENT
  Sex: Male

DRUGS (3)
  1. LACTULOSE [Concomitant]
     Indication: PEPTIC ULCER
     Route: 048
  2. CLOZAPINE [Suspect]
     Indication: SCHIZOPHRENIA
     Dosage: 375 MG, QD
     Route: 048
     Dates: start: 20010803
  3. FYBOGEL [Concomitant]
     Indication: PEPTIC ULCER
     Route: 048

REACTIONS (4)
  - MALAISE [None]
  - HAEMOGLOBIN DECREASED [None]
  - PAIN [None]
  - PEPTIC ULCER HAEMORRHAGE [None]
